FAERS Safety Report 4982515-0 (Version None)
Quarter: 2006Q2

REPORT INFORMATION
  Report Type: 
  Country: None (occurrence: None)
  Receive Date: 20060421
  Receipt Date: 20060410
  Transmission Date: 20061013
  Serious: Yes (Hospitalization)
  Sender: FDA-Public Use
  Company Number: FEI2006-0035

PATIENT
  Age: 27 Year
  Sex: Female
  Weight: 74.8435 kg

DRUGS (11)
  1. INTRAUTERINE COPPER CONTRACEPTIVE [Suspect]
     Indication: CONTRACEPTION
     Dosage: INTRA-UTERINE
     Route: 015
     Dates: start: 20031230, end: 20040807
  2. PITOCIN (OXYTOCIN CITRATE) [Concomitant]
  3. PRENATAL VITAMINS (PRENATAL VITAMINS) [Concomitant]
  4. BACTRIM [Concomitant]
  5. ZITHROMAX [Concomitant]
  6. UNSPECIFICED OTC MEDICATIONS [Concomitant]
  7. DURATUSS (RESPAIRE-SR-120) [Concomitant]
  8. KEFLEX (CEFAXEXIN MONOHYDRATE) [Concomitant]
  9. TYLENOL [Concomitant]
  10. ALEVE [Concomitant]
  11. CEVIDIL (DINOPROSTONE) [Concomitant]

REACTIONS (19)
  - ABDOMINAL PAIN [None]
  - ANAEMIA [None]
  - BETA HAEMOLYTIC STREPTOCOCCAL INFECTION [None]
  - BREECH PRESENTATION [None]
  - CAESAREAN SECTION [None]
  - DIFFICULTY IN WALKING [None]
  - DRUG INEFFECTIVE [None]
  - IUCD COMPLICATION [None]
  - LABILE HYPERTENSION [None]
  - MALAISE [None]
  - PAIN IN EXTREMITY [None]
  - PALPITATIONS [None]
  - POLYHYDRAMNIOS [None]
  - PREGNANCY WITH CONTRACEPTIVE DEVICE [None]
  - PROTEIN URINE PRESENT [None]
  - SCIATICA [None]
  - SINUSITIS [None]
  - UTERINE CONTRACTIONS DURING PREGNANCY [None]
  - WEIGHT INCREASED [None]
